FAERS Safety Report 7891740-0 (Version None)
Quarter: 2011Q4

REPORT INFORMATION
  Report Type: 
  Country: None (occurrence: None)
  Receive Date: 20111103
  Receipt Date: 20110809
  Transmission Date: 20120403
  Serious: No
  Sender: FDA-Public Use
  Company Number: US-AMGEN-USASP2011037267

PATIENT
  Age: 61 Year
  Sex: Female
  Weight: 102.4 kg

DRUGS (1)
  1. ENBREL [Suspect]
     Indication: PSORIASIS
     Dosage: 100 MG, QWK
     Route: 058
     Dates: start: 20110610

REACTIONS (5)
  - INJECTION SITE ERYTHEMA [None]
  - DIZZINESS [None]
  - INJECTION SITE MACULE [None]
  - HEADACHE [None]
  - DRUG INEFFECTIVE [None]
